FAERS Safety Report 9583505 (Version 1)
Quarter: 2013Q4

REPORT INFORMATION
  Report Type: Spontaneous
  Country: US (occurrence: US)
  Receive Date: 20131002
  Receipt Date: 20131002
  Transmission Date: 20140711
  Serious: No
  Sender: FDA-Public Use
  Company Number: US-AMGEN-USASP2013047481

PATIENT
  Age: 61 Year
  Sex: Female
  Weight: 41.72 kg

DRUGS (12)
  1. ENBREL [Suspect]
     Indication: PRODUCT USED FOR UNKNOWN INDICATION
     Dosage: 50 MG, QWK
     Route: 058
  2. BENICAR [Concomitant]
     Dosage: 40 MG, UNK
  3. SINGULAIR [Concomitant]
     Dosage: 10 MG, UNK
  4. CLARITIN                           /00413701/ [Concomitant]
     Dosage: 10 MG, UNK
  5. SYNTHROID [Concomitant]
     Dosage: 75 MUG, UNK
  6. TRICOR                             /00090101/ [Concomitant]
     Dosage: 48 MG, UNK
  7. PIOGLITAZONE [Concomitant]
     Dosage: 15 MG, UNK
  8. FISH OIL [Concomitant]
     Dosage: UNK
  9. CO Q10 [Concomitant]
     Dosage: UNK
  10. VITAMIN D3 [Concomitant]
     Dosage: 2000 UNIT, UNK
  11. VITAMIN E                          /00110501/ [Concomitant]
     Dosage: 1000 UNIT, UNK
  12. VITAMIN B12                        /00056201/ [Concomitant]
     Dosage: 1000 TR, UNK

REACTIONS (1)
  - Tenderness [Unknown]
